FAERS Safety Report 6946057-5 (Version None)
Quarter: 2010Q3

REPORT INFORMATION
  Report Type: 
  Country: None (occurrence: None)
  Receive Date: 20100827
  Receipt Date: 20090904
  Transmission Date: 20110219
  Serious: No
  Sender: FDA-Public Use
  Company Number: A0796712A

PATIENT
  Sex: Female

DRUGS (1)
  1. ZOVIRAX [Suspect]
     Dosage: 1APP AS DIRECTED
     Route: 061
     Dates: start: 20090701, end: 20090705

REACTIONS (2)
  - PRODUCT QUALITY ISSUE [None]
  - PRURITUS [None]
